FAERS Safety Report 8936463 (Version 1)
Quarter: 2012Q4

REPORT INFORMATION
  Report Type: 
  Country: US (occurrence: US)
  Receive Date: 20121130
  Receipt Date: 20121130
  Transmission Date: 20130627
  Serious: Yes (Hospitalization)
  Sender: FDA-Public Use
  Company Number: US-ELI_LILLY_AND_COMPANY-US201211006742

PATIENT
  Sex: Male

DRUGS (1)
  1. AXIRON [Suspect]
     Dosage: UNK, unknown
     Route: 065

REACTIONS (2)
  - Hospitalisation [Unknown]
  - Dysgeusia [Unknown]
